FAERS Safety Report 8133863-7 (Version None)
Quarter: 2012Q1

REPORT INFORMATION
  Report Type: 
  Country: None (occurrence: None)
  Receive Date: 20120213
  Receipt Date: 20120131
  Transmission Date: 20120608
  Serious: Yes (Other)
  Sender: FDA-Public Use
  Company Number: NO-MERCK-1202NOR00001

PATIENT
  Age: 80 Year
  Sex: Female

DRUGS (4)
  1. BENDROFLUMETHIAZIDE AND POTASSIUM CHLORIDE [Concomitant]
     Indication: HYPERTENSION
     Route: 048
     Dates: start: 20110101
  2. FUROSEMIDE [Concomitant]
     Indication: OEDEMA
     Route: 048
     Dates: start: 20110101
  3. RANIBIZUMAB [Suspect]
     Indication: MACULAR DEGENERATION
     Route: 051
     Dates: start: 20090622, end: 20110426
  4. FOSAMAX [Suspect]
     Indication: OSTEOPOROSIS
     Route: 048
     Dates: start: 20110101

REACTIONS (4)
  - ANGINA PECTORIS [None]
  - MYOCARDIAL INFARCTION [None]
  - ANAEMIA [None]
  - RENAL FAILURE [None]
